FAERS Safety Report 16720510 (Version 1)
Quarter: 2019Q4

REPORT INFORMATION
  Report Type: Spontaneous
  Country: US (occurrence: US)
  Receive Date: 20190819
  Receipt Date: 20190819
  Transmission Date: 20200122
  Serious: Yes (Other)
  Sender: FDA-Public Use
  Company Number: None

PATIENT
  Age: 70 Year
  Sex: Female
  Weight: 92.7 kg

DRUGS (9)
  1. FENTANYL. [Concomitant]
     Active Substance: FENTANYL
  2. ATENOLOL. [Concomitant]
     Active Substance: ATENOLOL
  3. NORCO [Concomitant]
     Active Substance: ACETAMINOPHEN\HYDROCODONE BITARTRATE
  4. LETROZOLE. [Suspect]
     Active Substance: LETROZOLE
     Indication: BREAST CANCER FEMALE
     Route: 048
     Dates: start: 20190112, end: 20190819
  5. FASLODEX [Concomitant]
     Active Substance: FULVESTRANT
  6. LEVOTHYROXINE. [Concomitant]
     Active Substance: LEVOTHYROXINE
  7. TEMAZEPAM. [Concomitant]
     Active Substance: TEMAZEPAM
  8. IBRANCE [Suspect]
     Active Substance: PALBOCICLIB
     Indication: BREAST CANCER FEMALE
     Route: 048
     Dates: start: 20181213, end: 20190819
  9. CITALOPRAM [Concomitant]
     Active Substance: CITALOPRAM HYDROBROMIDE

REACTIONS (1)
  - Hospice care [None]

NARRATIVE: CASE EVENT DATE: 20190819
